FAERS Safety Report 18487626 (Version 1)
Quarter: 2020Q4

REPORT INFORMATION
  Report Type: Spontaneous
  Country: CN (occurrence: CN)
  Receive Date: 20201110
  Receipt Date: 20201110
  Transmission Date: 20210114
  Serious: Yes (Other)
  Sender: FDA-Public Use
  Company Number: CN-PFIZER INC-2020439055

PATIENT
  Age: 92 Year
  Sex: Male
  Weight: 60 kg

DRUGS (2)
  1. LI FU XING [Suspect]
     Active Substance: LEVOFLOXACIN
     Indication: CHRONIC OBSTRUCTIVE PULMONARY DISEASE
     Dosage: 0.5 G, 1X/DAY
     Route: 041
     Dates: start: 20201026, end: 20201028
  2. MEDROL [Suspect]
     Active Substance: METHYLPREDNISOLONE
     Indication: CHRONIC OBSTRUCTIVE PULMONARY DISEASE
     Dosage: 8 MG, 3X/DAY
     Route: 048
     Dates: start: 20201026, end: 20201029

REACTIONS (1)
  - Delirium [Recovering/Resolving]

NARRATIVE: CASE EVENT DATE: 20201026
